FAERS Safety Report 25493013 (Version 1)
Quarter: 2025Q2

REPORT INFORMATION
  Report Type: Spontaneous
  Country: US (occurrence: US)
  Receive Date: 20250630
  Receipt Date: 20250630
  Transmission Date: 20250716
  Serious: Yes (Hospitalization, Other)
  Sender: CURRAX PHARMACEUTICALS
  Company Number: US-NALPROPION PHARMACEUTICALS INC.-US-2024CUR002651

PATIENT
  Sex: Female

DRUGS (1)
  1. CONTRAVE [Suspect]
     Active Substance: BUPROPION HYDROCHLORIDE\NALTREXONE HYDROCHLORIDE
     Indication: Product used for unknown indication
     Route: 048
     Dates: start: 2024, end: 2024

REACTIONS (3)
  - Herpes zoster meningoencephalitis [Unknown]
  - Meningitis viral [Unknown]
  - Illness [Unknown]

NARRATIVE: CASE EVENT DATE: 20240101
